FAERS Safety Report 13780704 (Version 4)
Quarter: 2017Q4

REPORT INFORMATION
  Report Type: Spontaneous
  Country: US (occurrence: US)
  Receive Date: 20170724
  Receipt Date: 20171026
  Transmission Date: 20180320
  Serious: No
  Sender: FDA-Public Use
  Company Number: US-PFIZER INC-2017318390

PATIENT
  Age: 56 Year
  Sex: Female
  Weight: 64.4 kg

DRUGS (2)
  1. IBRANCE [Suspect]
     Active Substance: PALBOCICLIB
     Indication: BREAST CANCER METASTATIC
     Dosage: 125 MG, CYCLIC (DAY 1-21, Q 28 DAYS)
     Route: 048
     Dates: start: 20170705
  2. IBRANCE [Suspect]
     Active Substance: PALBOCICLIB
     Dosage: 125 MG, CYCLIC(DAY 1-21, Q 28 DAYS)
     Route: 048
     Dates: start: 20170705, end: 201709

REACTIONS (5)
  - Nausea [Not Recovered/Not Resolved]
  - Fatigue [Unknown]
  - Hepatic enzyme increased [Unknown]
  - Liver disorder [Unknown]
  - Insomnia [Unknown]

NARRATIVE: CASE EVENT DATE: 20170721
